FAERS Safety Report 6637273-0 (Version None)
Quarter: 2010Q1

REPORT INFORMATION
  Report Type: 
  Country: None (occurrence: None)
  Receive Date: 20100316
  Receipt Date: 20100202
  Transmission Date: 20100710
  Serious: No
  Sender: FDA-Public Use
  Company Number: US-ABBOTT-10P-163-0624281-00

PATIENT
  Age: 66 Year
  Sex: Male
  Weight: 113.5 kg

DRUGS (9)
  1. TRILIPIX [Suspect]
     Indication: BLOOD TRIGLYCERIDES INCREASED
     Dosage: DAILY IN AM, ON OCCASION TAKEN AT 3PM
     Route: 048
     Dates: start: 20100129, end: 20100201
  2. LIPITOR [Concomitant]
     Indication: CARDIAC DISORDER
  3. MYCARDIS [Concomitant]
     Indication: DRUG USE FOR UNKNOWN INDICATION
  4. ATENOLOL [Concomitant]
     Indication: DRUG USE FOR UNKNOWN INDICATION
  5. COZAAR [Concomitant]
     Indication: DRUG USE FOR UNKNOWN INDICATION
  6. PRANDIN [Concomitant]
     Indication: DRUG USE FOR UNKNOWN INDICATION
  7. JANUVIA [Concomitant]
     Indication: DRUG USE FOR UNKNOWN INDICATION
  8. ASPIRIN [Concomitant]
     Indication: DRUG USE FOR UNKNOWN INDICATION
     Route: 048
  9. VALIUM [Concomitant]
     Indication: DRUG USE FOR UNKNOWN INDICATION

REACTIONS (4)
  - DYSPNOEA [None]
  - ERYTHEMA [None]
  - PRURITUS GENERALISED [None]
  - SKIN BURNING SENSATION [None]
